FAERS Safety Report 6371986-3 (Version None)
Quarter: 2009Q3

REPORT INFORMATION
  Report Type: 
  Country: None (occurrence: None)
  Receive Date: 20090917
  Receipt Date: 20090904
  Transmission Date: 20100115
  Serious: Yes (Death)
  Sender: FDA-Public Use
  Company Number: ADR19212009 (ARROW GENERICS LOG NO.: AG1661)

PATIENT
  Age: 77 Year
  Sex: Male

DRUGS (22)
  1. SALBUTAMOL (MFR: UNKNOWN) [Suspect]
     Dosage: 100 MCG, BD PRN
     Route: 055
  2. COMBIVENT QDS [Concomitant]
  3. SPIRIVA [Concomitant]
  4. ASPIRIN [Concomitant]
  5. ATORVASTATIN [Concomitant]
  6. BECLOMETHASONE DIPROPIONATE [Concomitant]
  7. FRUMIL [Concomitant]
  8. DEXMETHASONE [Concomitant]
  9. DILTIAZEM [Concomitant]
  10. DOTHIEPIN HYDROCHLORIDE [Concomitant]
  11. FUROSEMIDE [Concomitant]
  12. GAVISCON [Concomitant]
  13. LACTULOSE [Concomitant]
  14. LANSOPRAZOLE [Concomitant]
  15. METOCLOPRAMIDE [Concomitant]
  16. NITROLINGUAL [Concomitant]
  17. NOZINAN [Concomitant]
  18. OXYCODONE HCL [Concomitant]
  19. OXYGEN [Concomitant]
  20. SPIRONOLACTONE [Concomitant]
  21. SYMBICORT [Concomitant]
  22. TEMAZEPAM [Concomitant]

REACTIONS (1)
  - MESOTHELIOMA [None]
